FAERS Safety Report 7363440-7 (Version None)
Quarter: 2011Q1

REPORT INFORMATION
  Report Type: 
  Country: None (occurrence: None)
  Receive Date: 20110321
  Receipt Date: 20110317
  Transmission Date: 20110831
  Serious: Yes (Death)
  Sender: FDA-Public Use
  Company Number: PHHY2011AU21744

PATIENT
  Age: 72 Year
  Sex: Female

DRUGS (2)
  1. ACLASTA [Suspect]
     Dosage: UNK
     Route: 042
     Dates: start: 20081121
  2. ACLASTA [Suspect]
     Dosage: UNK
     Route: 042
     Dates: start: 20091201

REACTIONS (1)
  - PULMONARY EMBOLISM [None]
